FAERS Safety Report 10646339 (Version 1)
Quarter: 2014Q4

REPORT INFORMATION
  Report Type: Spontaneous
  Country: GB (occurrence: GB)
  Receive Date: 20141211
  Receipt Date: 20141211
  Transmission Date: 20150529
  Serious: Yes (Other)
  Sender: FDA-Public Use
  Company Number: GB-TEVA-526921ISR

PATIENT
  Age: 78 Year
  Sex: Male
  Weight: 85.7 kg

DRUGS (13)
  1. FOLIC ACID. [Concomitant]
     Active Substance: FOLIC ACID
     Dates: start: 20140819
  2. BISOPROLOL [Concomitant]
     Active Substance: BISOPROLOL
     Dates: start: 20140819
  3. CALCIUM CARBONATE. [Concomitant]
     Active Substance: CALCIUM CARBONATE
     Dates: start: 20140819
  4. ATORVASTATIN [Concomitant]
     Active Substance: ATORVASTATIN
     Dates: start: 20140819
  5. TAMSULOSIN HYDROCHLORIDE. [Concomitant]
     Active Substance: TAMSULOSIN HYDROCHLORIDE
     Dates: start: 20140819
  6. ASPIRIN. [Concomitant]
     Active Substance: ASPIRIN
     Dates: start: 20140819
  7. LANSOPRAZOLE. [Concomitant]
     Active Substance: LANSOPRAZOLE
     Dates: start: 20140819, end: 20140826
  8. SODIUM BICARBONATE. [Concomitant]
     Active Substance: SODIUM BICARBONATE
     Dates: start: 20140821, end: 20140828
  9. NITROFURANTOIN. [Suspect]
     Active Substance: NITROFURANTOIN
     Dates: start: 20141010
  10. GLYCERYL TRINITRATE [Concomitant]
     Active Substance: NITROGLYCERIN
     Dates: start: 20140811, end: 20140908
  11. IMUVAC [Concomitant]
     Active Substance: INFLUENZA A VIRUS A/CALIFORNIA/7/2009(H1N1)-LIKE ANTIGEN (PROPIOLACTONE INACTIVATED)
     Dates: start: 20140926, end: 20140927
  12. TROSPIUM [Concomitant]
     Active Substance: TROSPIUM
     Dates: start: 20140819
  13. LOSARTAN [Concomitant]
     Active Substance: LOSARTAN
     Dates: start: 20140819

REACTIONS (2)
  - Headache [Recovering/Resolving]
  - Tremor [Recovering/Resolving]

NARRATIVE: CASE EVENT DATE: 20141121
